FAERS Safety Report 23038389 (Version 1)
Quarter: 2023Q4

REPORT INFORMATION
  Report Type: Spontaneous
  Country: JP (occurrence: JP)
  Receive Date: 20231006
  Receipt Date: 20231006
  Transmission Date: 20240110
  Serious: Yes (Life-Threatening, Hospitalization, Other)
  Sender: FDA-Public Use
  Company Number: JP-Accord-383514

PATIENT
  Age: 50 Year
  Sex: Male

DRUGS (3)
  1. AMLODIPINE [Suspect]
     Active Substance: AMLODIPINE BESYLATE
     Dosage: HIGH DOSE
  2. ATENOLOL [Suspect]
     Active Substance: ATENOLOL
     Dosage: HIGH DOSE
  3. ETIZOLAM [Concomitant]
     Active Substance: ETIZOLAM

REACTIONS (9)
  - Septic shock [Unknown]
  - Intentional overdose [Recovered/Resolved]
  - Sinus bradycardia [Recovered/Resolved]
  - Electrocardiogram J wave [Recovered/Resolved]
  - Hypotension [Unknown]
  - Acute kidney injury [Unknown]
  - Cardiogenic shock [Recovered/Resolved]
  - Cardiac arrest [Recovered/Resolved]
  - Pneumonia [Unknown]
